FAERS Safety Report 17677906 (Version 1)
Quarter: 2020Q2

REPORT INFORMATION
  Report Type: Report from Study
  Country: None (occurrence: US)
  Receive Date: 20200416
  Receipt Date: 20200416
  Transmission Date: 20200714
  Serious: Yes (Hospitalization)
  Sender: FDA-Public Use
  Company Number: US-ABBVIE-20K-163-3336478-00

PATIENT
  Age: 73 Year
  Sex: Female
  Weight: 56.75 kg

DRUGS (14)
  1. BRIMONIDINE [Concomitant]
     Active Substance: BRIMONIDINE TARTRATE
     Indication: INTRAOCULAR PRESSURE INCREASED
  2. VITAMIN C [Concomitant]
     Active Substance: ASCORBIC ACID
     Indication: VITAMIN SUPPLEMENTATION
  3. HUMIRA [Suspect]
     Active Substance: ADALIMUMAB
     Indication: CROHN^S DISEASE
     Route: 058
     Dates: start: 201904, end: 202003
  4. CALCIUM C WITH D [Concomitant]
     Indication: MINERAL SUPPLEMENTATION
  5. TYLENOL [Concomitant]
     Active Substance: ACETAMINOPHEN
     Indication: HEADACHE
  6. HUMIRA [Suspect]
     Active Substance: ADALIMUMAB
     Route: 058
     Dates: start: 20200325
  7. PREDNISONE. [Concomitant]
     Active Substance: PREDNISONE
     Indication: PYODERMA
  8. CENTRUM SILVER [Concomitant]
     Active Substance: MINERALS\VITAMINS
     Indication: VITAMIN SUPPLEMENTATION
  9. CALCIUM C WITH D [Concomitant]
     Indication: VITAMIN SUPPLEMENTATION
  10. LATANOPROST. [Concomitant]
     Active Substance: LATANOPROST
     Indication: INTRAOCULAR PRESSURE INCREASED
  11. OMEPRAZOLE. [Concomitant]
     Active Substance: OMEPRAZOLE
     Indication: GASTROOESOPHAGEAL REFLUX DISEASE
  12. TYLENOL [Concomitant]
     Active Substance: ACETAMINOPHEN
     Indication: PAIN
  13. ELIQUIS [Concomitant]
     Active Substance: APIXABAN
     Indication: THROMBOSIS
  14. DORZOLAMIDE HCL [Concomitant]
     Active Substance: DORZOLAMIDE HYDROCHLORIDE
     Indication: INTRAOCULAR PRESSURE INCREASED

REACTIONS (8)
  - Hypotension [Recovered/Resolved with Sequelae]
  - Pulmonary thrombosis [Recovering/Resolving]
  - Asthenia [Recovering/Resolving]
  - Headache [Recovered/Resolved]
  - Urinary tract infection [Recovered/Resolved with Sequelae]
  - Renal impairment [Recovered/Resolved]
  - Intraocular pressure increased [Recovering/Resolving]
  - Blood potassium decreased [Recovered/Resolved]

NARRATIVE: CASE EVENT DATE: 201906
